FAERS Safety Report 6317739-3 (Version None)
Quarter: 2009Q3

REPORT INFORMATION
  Report Type: 
  Country: None (occurrence: None)
  Receive Date: 20090821
  Receipt Date: 20090814
  Transmission Date: 20100115
  Serious: Yes (Other)
  Sender: FDA-Public Use
  Company Number: PHHY2009BR24387

PATIENT
  Sex: Male

DRUGS (2)
  1. DIOVAN [Suspect]
     Dosage: 160 MG
  2. DIOVAN [Suspect]
     Dosage: 320 MG

REACTIONS (5)
  - BLOOD PRESSURE INCREASED [None]
  - BREAST DISCOMFORT [None]
  - CARDIAC DISORDER [None]
  - DRUG INEFFECTIVE [None]
  - SURGERY [None]
